FAERS Safety Report 4642434-6 (Version None)
Quarter: 2005Q2

REPORT INFORMATION
  Report Type: 
  Country: None (occurrence: None)
  Receive Date: 20050420
  Receipt Date: 20050406
  Transmission Date: 20051028
  Serious: Yes (Hospitalization)
  Sender: FDA-Public Use
  Company Number: FR_050205923

PATIENT
  Age: 69 Year
  Sex: Female
  Weight: 83 kg

DRUGS (5)
  1. ALIMTA [Suspect]
     Indication: PLEURAL MESOTHELIOMA MALIGNANT
     Dosage: 500 MG/M2/1 OTHER
     Dates: start: 20041014, end: 20050126
  2. CISPLATIN [Concomitant]
  3. FOLIC ACID [Concomitant]
  4. VITAMIN B-12 [Concomitant]
  5. DEXAMETHASONE [Concomitant]

REACTIONS (2)
  - ANAEMIA [None]
  - THROMBOTIC THROMBOCYTOPENIC PURPURA [None]
